FAERS Safety Report 11348982 (Version 2)
Quarter: 2015Q3

REPORT INFORMATION
  Report Type: Report from Study
  Country: US (occurrence: US)
  Receive Date: 20150807
  Receipt Date: 20150819
  Transmission Date: 20151125
  Serious: Yes (Death, Hospitalization)
  Sender: FDA-Public Use
  Company Number: US-ACTELION-A-NJ2015-121871

PATIENT
  Age: 57 Year
  Sex: Female

DRUGS (1)
  1. TRACLEER [Suspect]
     Active Substance: BOSENTAN
     Indication: PULMONARY ARTERIAL HYPERTENSION
     Dosage: UNK
     Route: 048
     Dates: start: 20040720, end: 20150710

REACTIONS (10)
  - Haemolytic anaemia [Unknown]
  - Disease complication [Fatal]
  - Acute kidney injury [Unknown]
  - Abdominal pain [Unknown]
  - Thrombocytopenia [Unknown]
  - Hyperhidrosis [Unknown]
  - Chromaturia [Unknown]
  - Cardiac arrest [Unknown]
  - Chest pain [Unknown]
  - Nausea [Unknown]

NARRATIVE: CASE EVENT DATE: 20150710
